FAERS Safety Report 25708301 (Version 1)
Quarter: 2025Q3

REPORT INFORMATION
  Report Type: Spontaneous
  Country: GB (occurrence: GB)
  Receive Date: 20250821
  Receipt Date: 20250821
  Transmission Date: 20251020
  Serious: Yes (Other)
  Sender: TEVA
  Company Number: None

PATIENT
  Sex: Female
  Weight: 71 kg

DRUGS (7)
  1. CLOTRIMAZOLE [Suspect]
     Active Substance: CLOTRIMAZOLE
     Indication: Pruritus
     Dosage: ON NIGHT, DURATION : 1 DAYS ,  1 DOSAGE FORMS DAILY
     Route: 065
     Dates: start: 20250813, end: 20250813
  2. CLOTRIMAZOLE [Suspect]
     Active Substance: CLOTRIMAZOLE
     Indication: Pruritus
     Dosage: DURATION : 1 WEEKS,  1 DOSAGE FORMS DAILY
     Route: 065
     Dates: start: 20250725
  3. CLOTRIMAZOLE [Suspect]
     Active Substance: CLOTRIMAZOLE
     Indication: Pruritus
     Dosage: DURATION : 1 WEEKS,  2 DOSAGE FORMS DAILY
     Route: 065
     Dates: start: 20250718
  4. BETAMETHASONE [Suspect]
     Active Substance: BETAMETHASONE
     Indication: Inflammation
     Dosage: DURATION : 1 WEEKS, 1 DOSAGE FORMS DAILY
     Route: 065
     Dates: start: 20250725, end: 20250801
  5. BETAMETHASONE [Suspect]
     Active Substance: BETAMETHASONE
     Indication: Inflammation
     Dosage: APPLIED TWICE A DAY FOR A WEEK AND THEN ONCE A DAY FOR A WEEK.  THIN LAYER.  SO STOPPED AFTER 1/8...
     Route: 065
     Dates: start: 20250718, end: 20250725
  6. BETAMETHASONE [Suspect]
     Active Substance: BETAMETHASONE
     Indication: Inflammation
     Dosage: ON NIGHT, DURATION : 1 DAYS, 1 DOSAGE FORMS DAILY
     Route: 065
     Dates: start: 20250813, end: 20250813
  7. PROPRANOLOL [Concomitant]
     Active Substance: PROPRANOLOL HYDROCHLORIDE
     Indication: Migraine prophylaxis
     Dosage: 30 MG DAILY
     Dates: start: 20240101

REACTIONS (2)
  - Scintillating scotoma [Unknown]
  - Migraine with aura [Recovering/Resolving]

NARRATIVE: CASE EVENT DATE: 20250814
